FAERS Safety Report 7819035-1 (Version None)
Quarter: 2011Q4

REPORT INFORMATION
  Report Type: 
  Country: None (occurrence: None)
  Receive Date: 20111012
  Receipt Date: 20110927
  Transmission Date: 20120403
  Serious: Yes (Other)
  Sender: FDA-Public Use
  Company Number: 2011P1009140

PATIENT
  Age: 4 Year
  Sex: Male
  Weight: 18.5975 kg

DRUGS (1)
  1. CETIRIZINE HCL [Suspect]
     Indication: MULTIPLE ALLERGIES
     Dosage: 25 MG;QD;PO
     Route: 048
     Dates: start: 20110926

REACTIONS (4)
  - VOMITING [None]
  - GASTROENTERITIS VIRAL [None]
  - DYSPNOEA [None]
  - ASTHMA [None]
